FAERS Safety Report 14788174 (Version 1)
Quarter: 2018Q2

REPORT INFORMATION
  Report Type: Spontaneous
  Country: TH (occurrence: TH)
  Receive Date: 20180422
  Receipt Date: 20180422
  Transmission Date: 20180711
  Serious: Yes (Other)
  Sender: FDA-Public Use
  Company Number: TH-BAXTER-2018BAX011597

PATIENT
  Age: 33 Year
  Sex: Female

DRUGS (1)
  1. SUPRANE [Suspect]
     Active Substance: DESFLURANE
     Indication: OCCUPATIONAL EXPOSURE TO PRODUCT
     Route: 047
     Dates: start: 20180307

REACTIONS (4)
  - Corneal abrasion [Recovered/Resolved]
  - Corneal irritation [Recovered/Resolved]
  - Exposure via eye contact [Unknown]
  - Occupational exposure to product [Unknown]

NARRATIVE: CASE EVENT DATE: 20180307
